FAERS Safety Report 8076693-7 (Version None)
Quarter: 2012Q1

REPORT INFORMATION
  Report Type: 
  Country: None (occurrence: None)
  Receive Date: 20120127
  Receipt Date: 20120123
  Transmission Date: 20120608
  Serious: Yes (Other)
  Sender: FDA-Public Use
  Company Number: CA-ABBOTT-12P-028-0896317-00

PATIENT
  Sex: Female

DRUGS (1)
  1. HUMIRA [Suspect]
     Indication: ANKYLOSING SPONDYLITIS
     Route: 058
     Dates: start: 20110120, end: 20120102

REACTIONS (4)
  - ANKYLOSING SPONDYLITIS [None]
  - CARPAL TUNNEL SYNDROME [None]
  - HEADACHE [None]
  - NIGHT SWEATS [None]
